FAERS Safety Report 8853145 (Version 1)
Quarter: 2012Q4

REPORT INFORMATION
  Report Type: 
  Country: IN (occurrence: IN)
  Receive Date: 20121022
  Receipt Date: 20121022
  Transmission Date: 20130627
  Serious: Yes (Other)
  Sender: FDA-Public Use
  Company Number: IN-ASTRAZENECA-2012SE78367

PATIENT
  Age: 32 Year
  Sex: Female
  Weight: 50 kg

DRUGS (3)
  1. LIDOCAINE [Suspect]
     Indication: EPIDURAL ANAESTHESIA
     Dosage: Test dose of 3 ml containing 45 mg lidocaine
     Route: 037
  2. ADRENALINE [Suspect]
     Indication: EPIDURAL ANAESTHESIA
     Dosage: A test dose of 3 ml containing 15 ug adrenaline
     Route: 008
  3. ADRENALINE [Suspect]
     Indication: EPIDURAL ANAESTHESIA
     Dosage: 2nd test dose of 15 ug with saline
     Route: 008

REACTIONS (2)
  - Hypertension [Recovered/Resolved]
  - Bradycardia [Recovered/Resolved]
